FAERS Safety Report 8597988-4 (Version None)
Quarter: 2012Q3

REPORT INFORMATION
  Report Type: 
  Country: None (occurrence: None)
  Receive Date: 20120816
  Receipt Date: 20120807
  Transmission Date: 20120928
  Serious: Yes (Death, Other)
  Sender: FDA-Public Use
  Company Number: JP-BRISTOL-MYERS SQUIBB COMPANY-16753584

PATIENT
  Age: 31 Year
  Sex: Male
  Weight: 59 kg

DRUGS (8)
  1. RISPERDAL [Suspect]
     Indication: SCHIZOPHRENIA
     Dosage: 4MG: 4JUN-11JUN12(8DAYS) 2MG:12JUN-29JUN12(18DAYS)
     Route: 048
     Dates: start: 20120604, end: 20120629
  2. PROMETHAZINE HCL [Concomitant]
     Dates: start: 20120612, end: 20120629
  3. MIYA-BM [Concomitant]
     Dates: start: 20120623
  4. ABILIFY [Suspect]
     Indication: SCHIZOPHRENIA
     Route: 048
     Dates: start: 20120623, end: 20120629
  5. LEVOTOMIN [Suspect]
     Route: 048
     Dates: start: 20120601
  6. METHOTRIMEPRAZINE MALEATE [Suspect]
  7. ROHYPNOL [Suspect]
     Dates: start: 20120601
  8. DIAZEPAM [Concomitant]
     Dates: start: 20120612, end: 20120629

REACTIONS (5)
  - EOSINOPHILIC PNEUMONIA [None]
  - PULMONARY ALVEOLAR HAEMORRHAGE [None]
  - NEUROLEPTIC MALIGNANT SYNDROME [None]
  - ACUTE RESPIRATORY DISTRESS SYNDROME [None]
  - PNEUMONIA STAPHYLOCOCCAL [None]
